FAERS Safety Report 18220391 (Version 3)
Quarter: 2020Q4

REPORT INFORMATION
  Report Type: Other
  Country: US (occurrence: US)
  Receive Date: 20200902
  Receipt Date: 20201103
  Transmission Date: 20210113
  Serious: Yes (Other)
  Sender: FDA-Public Use
  Company Number: US-ROCHE-2666269

PATIENT
  Sex: Male
  Weight: 143.01 kg

DRUGS (11)
  1. PREDNISONE. [Concomitant]
     Active Substance: PREDNISONE
     Indication: CORNEAL TRANSPLANT
     Dosage: 1 DROP IN RIGHT EYE
     Route: 031
     Dates: start: 2018
  2. TINACTIN [Concomitant]
     Active Substance: TOLNAFTATE
     Indication: TINEA CRURIS
  3. OCREVUS [Suspect]
     Active Substance: OCRELIZUMAB
     Indication: RELAPSING-REMITTING MULTIPLE SCLEROSIS
     Dosage: MOST RECENT DOSES GIVEN: 04/OCT/2019, 18/OCT/2019, 18/MAY/2020
     Route: 042
     Dates: start: 20191004
  4. CRANBERRY. [Concomitant]
     Active Substance: CRANBERRY
     Dosage: CRANBERRY CONCENTRATE SOFT GELS
     Route: 048
     Dates: start: 2014
  5. METHENAMINE HIPPURATE. [Concomitant]
     Active Substance: METHENAMINE HIPPURATE
     Indication: PROPHYLAXIS
     Route: 048
     Dates: start: 2017
  6. OMEPRAZOLE. [Concomitant]
     Active Substance: OMEPRAZOLE
     Indication: BARRETT^S OESOPHAGUS
     Route: 048
  7. VITAMIN D3 [Concomitant]
     Active Substance: CHOLECALCIFEROL
     Indication: VITAMIN D DEFICIENCY
     Dosage: 5000 UNITS
     Route: 048
  8. OCREVUS [Suspect]
     Active Substance: OCRELIZUMAB
     Indication: PRIMARY PROGRESSIVE MULTIPLE SCLEROSIS
  9. CARBAMAZEPINE. [Concomitant]
     Active Substance: CARBAMAZEPINE
     Indication: MULTIPLE SCLEROSIS RELAPSE
     Route: 048
     Dates: start: 201903
  10. LISINOPRIL. [Concomitant]
     Active Substance: LISINOPRIL
     Indication: HYPERTENSION
     Route: 048
  11. NORTRIPTYLINE [Concomitant]
     Active Substance: NORTRIPTYLINE
     Indication: IRRITABLE BOWEL SYNDROME
     Route: 048
     Dates: start: 2017

REACTIONS (8)
  - Urticaria [Recovered/Resolved]
  - Rash [Recovering/Resolving]
  - Decubitus ulcer [Not Recovered/Not Resolved]
  - Urinary tract infection [Recovered/Resolved]
  - Somnolence [Not Recovered/Not Resolved]
  - Fungal infection [Not Recovered/Not Resolved]
  - Tinea cruris [Not Recovered/Not Resolved]
  - Pruritus [Not Recovered/Not Resolved]

NARRATIVE: CASE EVENT DATE: 2020
